FAERS Safety Report 6028622-5 (Version None)
Quarter: 2008Q4

REPORT INFORMATION
  Report Type: 
  Country: None (occurrence: None)
  Receive Date: 20081222
  Receipt Date: 20081029
  Transmission Date: 20090506
  Serious: No
  Sender: FDA-Public Use
  Company Number: US-WYE-H06631208

PATIENT

DRUGS (2)
  1. PRISTIQ [Suspect]
     Indication: DEPRESSION
     Dosage: 50 MG 1X PER 1 DAY, ORAL
     Route: 048
     Dates: start: 20080101
  2. EFFEXOR XR [Suspect]
     Dosage: 75 MG 1X PER 1 DAY

REACTIONS (2)
  - MOOD SWINGS [None]
  - OBSESSIVE-COMPULSIVE DISORDER [None]
